FAERS Safety Report 11102907 (Version 1)
Quarter: 2015Q2

REPORT INFORMATION
  Report Type: Spontaneous
  Country: US (occurrence: US)
  Receive Date: 20150511
  Receipt Date: 20150511
  Transmission Date: 20150821
  Serious: No
  Sender: FDA-Public Use
  Company Number: US-BAYER-2015-188958

PATIENT
  Age: 76 Year
  Sex: Female
  Weight: 73 kg

DRUGS (2)
  1. PREMARIN PLUS [Concomitant]
     Dosage: UNK
  2. MIRALAX [Suspect]
     Active Substance: POLYETHYLENE GLYCOL 3350
     Indication: CONSTIPATION
     Dosage: 1,UNK, QD
     Dates: start: 2002

REACTIONS (9)
  - Nausea [Recovered/Resolved]
  - Dysgraphia [None]
  - Fatigue [Recovered/Resolved]
  - Product physical issue [Unknown]
  - Incorrect drug administration duration [None]
  - Dizziness [None]
  - Confusional state [Recovered/Resolved]
  - Memory impairment [Recovered/Resolved]
  - Diarrhoea [Recovered/Resolved]

NARRATIVE: CASE EVENT DATE: 2002
